APPROVED DRUG PRODUCT: CHOLESTYRAMINE
Active Ingredient: CHOLESTYRAMINE
Strength: EQ 4GM RESIN/PACKET
Dosage Form/Route: POWDER;ORAL
Application: A077204 | Product #001 | TE Code: AB
Applicant: PH HEALTH LTD
Approved: Aug 26, 2005 | RLD: No | RS: No | Type: RX